FAERS Safety Report 18536227 (Version 1)
Quarter: 2020Q4

REPORT INFORMATION
  Report Type: Spontaneous
  Country: HU (occurrence: HU)
  Receive Date: 20201123
  Receipt Date: 20201123
  Transmission Date: 20210114
  Serious: Yes (Hospitalization, Other)
  Sender: FDA-Public Use
  Company Number: NVSC2020HU311577

PATIENT
  Age: 71 Year
  Sex: Male

DRUGS (13)
  1. BISOPROLOL [Suspect]
     Active Substance: BISOPROLOL
     Indication: PRODUCT USED FOR UNKNOWN INDICATION
     Dosage: 5 MG (2X)
     Route: 065
  2. ASA [Concomitant]
     Active Substance: ASPIRIN
     Indication: PRODUCT USED FOR UNKNOWN INDICATION
     Dosage: 100 MG (1X)
     Route: 065
  3. PANTOPRAZOLE [Concomitant]
     Active Substance: PANTOPRAZOLE
     Indication: PRODUCT USED FOR UNKNOWN INDICATION
     Dosage: 40 MG (IN THE EVENING)
     Route: 065
  4. SPIRONOLACTONE. [Concomitant]
     Active Substance: SPIRONOLACTONE
     Indication: PRODUCT USED FOR UNKNOWN INDICATION
     Dosage: 50 MG (1X)
     Route: 065
  5. WARFARIN [Concomitant]
     Active Substance: WARFARIN
     Indication: PRODUCT USED FOR UNKNOWN INDICATION
     Dosage: 5 MG
     Route: 065
     Dates: end: 201911
  6. TRIMETAZIDINE [Suspect]
     Active Substance: TRIMETAZIDINE
     Indication: PRODUCT USED FOR UNKNOWN INDICATION
     Dosage: 80 MG (1X)
     Route: 065
  7. SACUBITRIL,VALSARTAN [Suspect]
     Active Substance: SACUBITRIL\VALSARTAN
     Indication: PRODUCT USED FOR UNKNOWN INDICATION
     Dosage: 49 / 51 MG (2X/DAY)
     Route: 065
     Dates: start: 201911
  8. FUROSEMIDE. [Concomitant]
     Active Substance: FUROSEMIDE
     Indication: PRODUCT USED FOR UNKNOWN INDICATION
     Dosage: 40 MG, BID (40-40-0 MG)
     Route: 065
  9. PERINDOPRIL [Suspect]
     Active Substance: PERINDOPRIL
     Indication: PRODUCT USED FOR UNKNOWN INDICATION
     Dosage: 5 MG (1X)
     Route: 065
  10. METFORMIN [Suspect]
     Active Substance: METFORMIN HYDROCHLORIDE
     Indication: PRODUCT USED FOR UNKNOWN INDICATION
     Dosage: 500 MG (1X)
     Route: 065
  11. AMLODIPINE [Suspect]
     Active Substance: AMLODIPINE BESYLATE
     Indication: PRODUCT USED FOR UNKNOWN INDICATION
     Dosage: 2.5 MG (2X)
     Route: 065
     Dates: end: 2019
  12. PERINDOPRIL [Suspect]
     Active Substance: PERINDOPRIL
     Dosage: 5 MG (2X)
     Route: 065
     Dates: end: 201911
  13. APIXABAN [Concomitant]
     Active Substance: APIXABAN
     Indication: PRODUCT USED FOR UNKNOWN INDICATION
     Dosage: 5 MG (2X)
     Route: 065
     Dates: start: 201911

REACTIONS (16)
  - Ischaemic cardiomyopathy [Unknown]
  - Ejection fraction decreased [Unknown]
  - Dyspnoea [Recovered/Resolved]
  - Congestive cardiomyopathy [Unknown]
  - N-terminal prohormone brain natriuretic peptide increased [Unknown]
  - Coronary artery occlusion [Unknown]
  - Cardiac disorder [Recovering/Resolving]
  - Left ventricular dysfunction [Unknown]
  - Weight decreased [Unknown]
  - Generalised oedema [Recovered/Resolved]
  - Diabetes mellitus [Unknown]
  - Atrial flutter [Unknown]
  - Glomerular filtration rate decreased [Unknown]
  - Mitral valve incompetence [Unknown]
  - Ventricular hypokinesia [Unknown]
  - Bundle branch block left [Unknown]

NARRATIVE: CASE EVENT DATE: 201911
